FAERS Safety Report 23218402 (Version 1)
Quarter: 2023Q4

REPORT INFORMATION
  Report Type: Spontaneous
  Country: GB (occurrence: None)
  Receive Date: 20231122
  Receipt Date: 20231122
  Transmission Date: 20240110
  Serious: Yes (Hospitalization, Disabling)
  Sender: FDA-Public Use
  Company Number: 2023A259057

PATIENT
  Age: 55 Year
  Sex: Male

DRUGS (23)
  1. DAPAGLIFLOZIN [Suspect]
     Active Substance: DAPAGLIFLOZIN
  2. BALNEUM PLUS CREAM [Concomitant]
     Dosage: 1,TWO TIMES A DAY
  3. BETAMETHASONE VALERATE\FUSIDIC ACID [Concomitant]
     Active Substance: BETAMETHASONE VALERATE\FUSIDIC ACID
     Indication: Eczema
     Dosage: APPLY THINLY TO ANY EXORCIATED AREAS
  4. DERMOL [Concomitant]
     Active Substance: BENZALKONIUM CHLORIDE\CHLORHEXIDINE HYDROCHLORIDE\ISOPROPYL MYRISTATE\PARAFFIN
     Indication: Neurodermatitis
     Dosage: APPLY TO SKIN OR USE AS A SOAP SUBSTITUTE
  5. TRESIBA [Concomitant]
     Active Substance: INSULIN DEGLUDEC
     Indication: Type 2 diabetes mellitus
     Dosage: 60,EVERY DAY,AT NIGHT
     Route: 058
  6. TEICOPLANIN [Concomitant]
     Active Substance: TEICOPLANIN
     Dosage: 1400,TWO TIMES A DAY
     Dates: start: 20230420, end: 20230422
  7. AZTREONAM [Concomitant]
     Active Substance: AZTREONAM
     Dosage: 1,THREE TIMES A DAY
     Dates: start: 20230419, end: 20230422
  8. METRONIDAZOLE [Concomitant]
     Active Substance: METRONIDAZOLE
     Dosage: 500,THREE TIMES A DAY
     Route: 042
     Dates: start: 20230419, end: 20230422
  9. METHOTREXATE [Concomitant]
     Active Substance: METHOTREXATE
     Dosage: FRIDAYS - SUSPENDED AT [HOSPITAL] WHILE UNWELL,12.5,ONCE A WEEK
  10. ENOXAPARIN [Concomitant]
     Active Substance: ENOXAPARIN
     Dosage: 40,EVERY DAY
     Route: 058
  11. ATORVASTATIN [Concomitant]
     Active Substance: ATORVASTATIN
     Dosage: 40,EVERY DAY,EACH NIGHT
  12. DAPAGLIFLOZIN [Concomitant]
     Active Substance: DAPAGLIFLOZIN
     Dosage: 10,EVERY DAY
  13. DULAGLUTIDE [Concomitant]
     Active Substance: DULAGLUTIDE
     Dosage: 1.5MG/0.5ML
  14. GABAPENTIN [Concomitant]
     Active Substance: GABAPENTIN
     Dosage: 100,THREE TIMES A DAY
  15. NITROGLYCERIN [Concomitant]
     Active Substance: NITROGLYCERIN
     Indication: Cardiac failure
     Dosage: USE AS DIRECTED
     Route: 060
  16. FOLIC ACID [Concomitant]
     Active Substance: FOLIC ACID
     Dosage: EXCEPT THE DAY OF METHOTREXATE,5,EVERY DAY
  17. BUMETANIDE [Concomitant]
     Active Substance: BUMETANIDE
     Dosage: EACH MORNING AND ONE TO BE TAKEN WHEN REQUIRED AS PER NEPHROLOGY
  18. CLOPIDOGREL [Concomitant]
     Active Substance: CLOPIDOGREL BISULFATE
     Dosage: 75,EVERY DAY
  19. FEXOFENADINE [Concomitant]
     Active Substance: FEXOFENADINE HYDROCHLORIDE
     Indication: Neurodermatitis
     Dosage: AS REQUIRED AS PER DERMATOLOGY,120,EVERY DAY
  20. METFORMIN [Concomitant]
     Active Substance: METFORMIN HYDROCHLORIDE
     Dosage: 500,TWO TIMES A DAY,MORNING AND AFTERNOON
  21. SPIRONOLACTONE [Concomitant]
     Active Substance: SPIRONOLACTONE
     Dosage: 25,EVERY DAY,EACH MORNING
  22. MOMETASONE [Concomitant]
     Active Substance: MOMETASONE
     Dosage: 1,EVERY DAY,APPLY THINLY
  23. VITAMINS [Concomitant]
     Active Substance: VITAMINS
     Dosage: 1,EVERY DAY

REACTIONS (1)
  - Toe amputation [Recovered/Resolved]
